FAERS Safety Report 8564631-X (Version None)
Quarter: 2012Q3

REPORT INFORMATION
  Report Type: 
  Country: None (occurrence: None)
  Receive Date: 20120803
  Receipt Date: 20120727
  Transmission Date: 20120928
  Serious: Yes (Hospitalization)
  Sender: FDA-Public Use
  Company Number: JP-EISAI INC-E2090-02239-SPO-JP

PATIENT
  Age: 75 Year
  Sex: Female

DRUGS (2)
  1. ZONISAMIDE [Suspect]
     Indication: PARKINSON'S DISEASE
     Dosage: 25 MG DAILY
     Route: 048
  2. MENEST [Suspect]
     Dosage: 300 MG DAILY
     Route: 048

REACTIONS (1)
  - AKINESIA [None]
